FAERS Safety Report 23275275 (Version 4)
Quarter: 2023Q4

REPORT INFORMATION
  Report Type: Report from Study
  Country: US (occurrence: US)
  Receive Date: 20231208
  Receipt Date: 20231227
  Transmission Date: 20240109
  Serious: Yes (Hospitalization)
  Sender: FDA-Public Use
  Company Number: US-JNJFOC-20231205149

PATIENT
  Age: 69 Year
  Sex: Male
  Weight: 65.8 kg

DRUGS (29)
  1. CISAPRIDE [Suspect]
     Active Substance: CISAPRIDE
     Indication: Gastrooesophageal reflux disease
     Dosage: LAST ADMINISTRATION ON 03-OCT-2023
     Route: 048
     Dates: start: 20010802
  2. CISAPRIDE [Suspect]
     Active Substance: CISAPRIDE
     Indication: Gastrointestinal motility disorder
  3. TYLENOL [Concomitant]
     Active Substance: ACETAMINOPHEN
     Indication: Pain
     Dates: start: 2002
  4. CETIRIZINE [Concomitant]
     Active Substance: CETIRIZINE HYDROCHLORIDE
  5. PRILOSEC [Concomitant]
     Active Substance: OMEPRAZOLE MAGNESIUM
     Indication: Gastrooesophageal reflux disease
     Dates: start: 20230516, end: 20231120
  6. DILAUDID [Concomitant]
     Active Substance: HYDROMORPHONE HYDROCHLORIDE
     Indication: Cholangitis
     Dates: start: 20231014, end: 20231016
  7. DILAUDID [Concomitant]
     Active Substance: HYDROMORPHONE HYDROCHLORIDE
     Dates: start: 20231016, end: 20231024
  8. PERCOCET [Concomitant]
     Active Substance: ACETAMINOPHEN\OXYCODONE HYDROCHLORIDE
  9. ZOSYN [Concomitant]
     Active Substance: PIPERACILLIN SODIUM\TAZOBACTAM SODIUM
     Indication: Cholangitis
     Dates: start: 20231016, end: 20231016
  10. ZOSYN [Concomitant]
     Active Substance: PIPERACILLIN SODIUM\TAZOBACTAM SODIUM
     Dates: start: 20231020, end: 20231020
  11. ZOSYN [Concomitant]
     Active Substance: PIPERACILLIN SODIUM\TAZOBACTAM SODIUM
     Dates: start: 20231024, end: 20231024
  12. ZOSYN [Concomitant]
     Active Substance: PIPERACILLIN SODIUM\TAZOBACTAM SODIUM
     Dates: start: 20231122
  13. SENOKOT [Concomitant]
     Active Substance: SENNOSIDES
     Dates: start: 20231021, end: 20231021
  14. SENOKOT [Concomitant]
     Active Substance: SENNOSIDES
     Dates: start: 20231024, end: 20231024
  15. MILK OF MAGNESIA [Concomitant]
     Active Substance: MAGNESIUM HYDROXIDE
     Indication: Cholangitis
     Dates: start: 20231021, end: 20231021
  16. LOPERAMIDE [Concomitant]
     Active Substance: LOPERAMIDE
     Indication: Impaired gastric emptying
     Dates: start: 20231026, end: 20231026
  17. DICLOFENAC [Concomitant]
     Active Substance: DICLOFENAC
     Indication: Chondrocalcinosis
     Dates: start: 20231020, end: 20231021
  18. DICLOFENAC [Concomitant]
     Active Substance: DICLOFENAC
     Dates: start: 20231023, end: 20231026
  19. PEPCID [Concomitant]
     Active Substance: FAMOTIDINE
     Indication: Gastrooesophageal reflux disease
     Dates: start: 20231004, end: 20231005
  20. PEPCID [Concomitant]
     Active Substance: FAMOTIDINE
     Dates: start: 20231009, end: 20231012
  21. SALONPAS LIDOCAINE [Concomitant]
     Route: 061
  22. NEURONTIN [Concomitant]
     Active Substance: GABAPENTIN
     Indication: Post herpetic neuralgia
     Dates: start: 20230802, end: 20230810
  23. NEURONTIN [Concomitant]
     Active Substance: GABAPENTIN
     Dates: start: 20230811, end: 20230818
  24. ZANTAC [Concomitant]
     Active Substance: RANITIDINE HYDROCHLORIDE
     Indication: Gastrooesophageal reflux disease
     Dates: start: 20231003, end: 20231003
  25. ZANTAC [Concomitant]
     Active Substance: RANITIDINE HYDROCHLORIDE
     Dates: start: 20231027, end: 20231113
  26. DIASTAT ACUDIAL [Concomitant]
     Active Substance: DIAZEPAM
     Dates: start: 20231121
  27. FENTANYL CITRATE [Concomitant]
     Active Substance: FENTANYL CITRATE
     Indication: Product used for unknown indication
     Route: 065
  28. MIDAZOLAM HYDROCHLORIDE [Concomitant]
     Active Substance: MIDAZOLAM HYDROCHLORIDE
     Indication: Product used for unknown indication
     Route: 065
  29. IOHEXOL [Concomitant]
     Active Substance: IOHEXOL
     Indication: Product used for unknown indication
     Route: 065

REACTIONS (1)
  - Pancreatitis acute [Recovered/Resolved]

NARRATIVE: CASE EVENT DATE: 20231121
